FAERS Safety Report 8202717-X (Version None)
Quarter: 2012Q1

REPORT INFORMATION
  Report Type: 
  Country: None (occurrence: None)
  Receive Date: 20120312
  Receipt Date: 20120301
  Transmission Date: 20120608
  Serious: Yes (Hospitalization)
  Sender: FDA-Public Use
  Company Number: DE-NOVOPROD-330942

PATIENT
  Age: 74 Year
  Sex: Male
  Weight: 113 kg

DRUGS (1)
  1. VICTOZA [Suspect]
     Indication: TYPE 2 DIABETES MELLITUS
     Dosage: DAILY DOSE: 1.8 MG MILLGRAM(S) EVERY DAYS
     Route: 058
     Dates: start: 20101101, end: 20110101

REACTIONS (2)
  - CHOLESTASIS [None]
  - PANCREATITIS [None]
